FAERS Safety Report 6460873-8 (Version None)
Quarter: 2009Q4

REPORT INFORMATION
  Report Type: 
  Country: None (occurrence: None)
  Receive Date: 20091130
  Receipt Date: 20091117
  Transmission Date: 20100525
  Serious: Yes (Hospitalization)
  Sender: FDA-Public Use
  Company Number: FR-ASTRAZENECA-2009SE27707

PATIENT
  Age: 19685 Day
  Sex: Male

DRUGS (8)
  1. NEXIUM [Suspect]
     Route: 048
     Dates: start: 20091009, end: 20091009
  2. VOLTAREN [Suspect]
     Route: 048
     Dates: start: 20091009, end: 20091009
  3. KARDEGIC [Concomitant]
     Route: 048
  4. SKENAN [Concomitant]
     Route: 048
     Dates: start: 20090925, end: 20091009
  5. ACTISKENAN [Concomitant]
     Route: 048
     Dates: start: 20091004, end: 20091009
  6. LESCOL [Concomitant]
     Route: 048
  7. PARACETAMOL [Concomitant]
     Route: 048
     Dates: start: 20091005
  8. RIVOTRIL [Concomitant]
     Route: 048
     Dates: start: 20091005, end: 20091009

REACTIONS (2)
  - ANGIOEDEMA [None]
  - HYPOTENSION [None]
